FAERS Safety Report 7967600-3 (Version None)
Quarter: 2011Q4

REPORT INFORMATION
  Report Type: 
  Country: None (occurrence: None)
  Receive Date: 20111209
  Receipt Date: 20111201
  Transmission Date: 20120403
  Serious: Yes (Other)
  Sender: FDA-Public Use
  Company Number: GB-JNJFOC-20110309542

PATIENT
  Sex: Male

DRUGS (8)
  1. HALOPERIDOL [Concomitant]
     Indication: PRODUCT USED FOR UNKNOWN INDICATION
     Route: 048
     Dates: start: 20110601
  2. HALDOL [Suspect]
     Indication: PRODUCT USED FOR UNKNOWN INDICATION
     Route: 030
     Dates: start: 20110601
  3. HALDOL [Suspect]
     Route: 030
     Dates: start: 20110601
  4. HALDOL [Suspect]
     Route: 030
     Dates: start: 20110201
  5. RISPERIDONE [Concomitant]
     Indication: PRODUCT USED FOR UNKNOWN INDICATION
     Route: 065
  6. RISPERDAL CONSTA [Concomitant]
     Indication: PRODUCT USED FOR UNKNOWN INDICATION
     Route: 030
     Dates: start: 20080101, end: 20110101
  7. HALOPERIDOL [Concomitant]
     Route: 048
     Dates: start: 20100601, end: 20101201
  8. LITHIUM [Interacting]
     Indication: PRODUCT USED FOR UNKNOWN INDICATION
     Route: 065
     Dates: start: 20080101, end: 20110101

REACTIONS (9)
  - SEDATION [None]
  - ABASIA [None]
  - OVERDOSE [None]
  - BLOOD POTASSIUM INCREASED [None]
  - DRUG INTERACTION [None]
  - UNEVALUABLE EVENT [None]
  - MENTAL DISORDER [None]
  - EXTRAPYRAMIDAL DISORDER [None]
  - FEELING ABNORMAL [None]
